FAERS Safety Report 24319377 (Version 1)
Quarter: 2024Q3

REPORT INFORMATION
  Report Type: Spontaneous
  Country: DE (occurrence: None)
  Receive Date: 20240914
  Receipt Date: 20240914
  Transmission Date: 20241017
  Serious: Yes (Other)
  Sender: ASTRAZENECA
  Company Number: 2024A208896

PATIENT
  Sex: Male

DRUGS (1)
  1. ONDEXXYA [Suspect]
     Active Substance: ANDEXANET ALFA
     Indication: Cerebrovascular accident
     Dosage: UNKNOWN
     Route: 040

REACTIONS (3)
  - Delirium [Recovered/Resolved]
  - Cerebrovascular accident [Unknown]
  - Pneumonia [Recovered/Resolved]
